FAERS Safety Report 8004461-0 (Version None)
Quarter: 2011Q4

REPORT INFORMATION
  Report Type: 
  Country: None (occurrence: None)
  Receive Date: 20111221
  Receipt Date: 20111221
  Transmission Date: 20120403
  Serious: Yes (Life-Threatening, Disabling, Other)
  Sender: FDA-Public Use
  Company Number: None

PATIENT
  Sex: Female

DRUGS (1)
  1. LISINOPRIL [Suspect]
     Indication: HYPERTENSION
     Dosage: 1 DAILY ORAL
     Route: 048
     Dates: start: 20100713, end: 20100918

REACTIONS (14)
  - HEADACHE [None]
  - NAUSEA [None]
  - COUGH [None]
  - VOMITING [None]
  - BONE PAIN [None]
  - PYREXIA [None]
  - CHILLS [None]
  - HEART RATE INCREASED [None]
  - UPPER-AIRWAY COUGH SYNDROME [None]
  - FACIAL PAIN [None]
  - FEELING ABNORMAL [None]
  - PAIN IN JAW [None]
  - PERSONALITY CHANGE [None]
  - MIDDLE INSOMNIA [None]
